FAERS Safety Report 7911778-4 (Version None)
Quarter: 2011Q4

REPORT INFORMATION
  Report Type: 
  Country: None (occurrence: None)
  Receive Date: 20111114
  Receipt Date: 20111114
  Transmission Date: 20120403
  Serious: Yes (Life-Threatening)
  Sender: FDA-Public Use
  Company Number: None

PATIENT
  Age: 35 Year
  Sex: Female
  Weight: 55 kg

DRUGS (1)
  1. BOTOX [Suspect]
     Indication: SKIN WRINKLING
     Dosage: 25 UNITS
     Dates: start: 20111107, end: 20111107

REACTIONS (19)
  - PARAESTHESIA ORAL [None]
  - DYSPHAGIA [None]
  - DIZZINESS [None]
  - DRY MOUTH [None]
  - TONGUE DRY [None]
  - PALPITATIONS [None]
  - DISORIENTATION [None]
  - HEART RATE INCREASED [None]
  - HYPOAESTHESIA [None]
  - FEELING HOT [None]
  - PARAESTHESIA [None]
  - DYSPNOEA [None]
  - TREMOR [None]
  - FEAR [None]
  - ASTHENIA [None]
  - ANXIETY [None]
  - DRUG INEFFECTIVE [None]
  - MIDDLE INSOMNIA [None]
  - PHARYNGEAL HYPOAESTHESIA [None]
